FAERS Safety Report 7301555-X (Version None)
Quarter: 2011Q1

REPORT INFORMATION
  Report Type: 
  Country: None (occurrence: None)
  Receive Date: 20110218
  Receipt Date: 20110210
  Transmission Date: 20110831
  Serious: Yes (Hospitalization, Other)
  Sender: FDA-Public Use
  Company Number: JP-PFIZER INC-2011003103

PATIENT
  Age: 41 Year
  Sex: Female
  Weight: 52 kg

DRUGS (4)
  1. VITAMEDIN INTRAVENOUS [Suspect]
     Indication: SUDDEN HEARING LOSS
     Dosage: UNK
     Route: 042
     Dates: start: 20110104, end: 20110104
  2. SOLITA-T3 INJECTION [Concomitant]
  3. ADETPHOS [Concomitant]
  4. SOLU-CORTEF [Suspect]
     Indication: SUDDEN HEARING LOSS
     Dosage: 300 MG, 1X/DAY
     Route: 042
     Dates: start: 20110104, end: 20110104

REACTIONS (2)
  - NAUSEA [None]
  - OROPHARYNGEAL SWELLING [None]
